FAERS Safety Report 4479593-4 (Version None)
Quarter: 2004Q4

REPORT INFORMATION
  Report Type: 
  Country: None (occurrence: None)
  Receive Date: 20041018
  Receipt Date: 20041001
  Transmission Date: 20050328
  Serious: Yes (Hospitalization)
  Sender: FDA-Public Use
  Company Number: 2004AP04319

PATIENT
  Age: 53 Year
  Sex: Male

DRUGS (16)
  1. ZOMIG [Suspect]
     Indication: MIGRAINE
     Dosage: 2.5 MG PRN PO
     Route: 048
     Dates: start: 20040510, end: 20040729
  2. BLOPRESS [Suspect]
     Indication: HYPERTENSION
     Dosage: 8 MG DAILY PO
     Route: 048
     Dates: start: 20040329, end: 20040729
  3. LASIX [Suspect]
     Indication: HYPERTENSION
     Dosage: 40 MG DAILY PO
     Route: 048
     Dates: start: 20040329, end: 20040729
  4. DIHYDERGOT [Suspect]
     Indication: MIGRAINE
     Dosage: 3 MG DAILY PO
     Route: 048
     Dates: start: 20040329, end: 20040729
  5. GASTER D [Concomitant]
  6. PURSENNID [Concomitant]
  7. MAGNESIUM OXIDE [Concomitant]
  8. DEPAS [Concomitant]
  9. TERNELIN [Concomitant]
  10. DEPAKENE [Concomitant]
  11. AM [Concomitant]
  12. ALMARL [Concomitant]
  13. CERCINE [Concomitant]
  14. MIGRISTENE [Concomitant]
  15. MIGSIS [Concomitant]
  16. IMIGRAN [Concomitant]

REACTIONS (3)
  - BLOOD CREATINE PHOSPHOKINASE INCREASED [None]
  - DRUG INEFFECTIVE [None]
  - RENAL FAILURE [None]
